FAERS Safety Report 19416028 (Version 2)
Quarter: 2021Q2

REPORT INFORMATION
  Report Type: Spontaneous
  Country: US (occurrence: US)
  Receive Date: 20210615
  Receipt Date: 20210623
  Transmission Date: 20210717
  Serious: Yes (Other)
  Sender: FDA-Public Use
  Company Number: US-TEVA-2021-US-1923555

PATIENT
  Age: 48 Year
  Sex: Male
  Weight: 106.69 kg

DRUGS (3)
  1. FLUOROURACIL. [Suspect]
     Active Substance: FLUOROURACIL
     Indication: ADENOCARCINOMA OF COLON
     Route: 042
  2. FOLINIC ACID [Suspect]
     Active Substance: LEUCOVORIN
     Indication: ADENOCARCINOMA OF COLON
     Route: 042
  3. ELOXATIN [Suspect]
     Active Substance: OXALIPLATIN
     Indication: ADENOCARCINOMA OF COLON
     Route: 042

REACTIONS (11)
  - Thrombocytopenia [Unknown]
  - Paraesthesia [Unknown]
  - Neuropathy peripheral [Unknown]
  - Nausea [Unknown]
  - Cancer fatigue [Unknown]
  - Vomiting [Unknown]
  - Limb discomfort [Unknown]
  - Tinea cruris [Unknown]
  - Hypoaesthesia [Unknown]
  - Constipation [Unknown]
  - Hypoacusis [Unknown]

NARRATIVE: CASE EVENT DATE: 201802
